FAERS Safety Report 5029432-8 (Version None)
Quarter: 2006Q2

REPORT INFORMATION
  Report Type: 
  Country: None (occurrence: None)
  Receive Date: 20060613
  Receipt Date: 20060530
  Transmission Date: 20061013
  Serious: Yes (Other)
  Sender: FDA-Public Use
  Company Number: GXKR2006GB03078

PATIENT
  Age: 73 Year
  Sex: Male

DRUGS (6)
  1. LISINOPRIL [Suspect]
     Dosage: 5MG, QD, UNK
  2. SIMVASTATIN [Suspect]
     Dosage: 20 MG, QD, UK
  3. WARFARIN(WARFARIN) [Suspect]
  4. SPIRONOLACTONE [Suspect]
     Dosage: 25 MG, QD, UNK
  5. DIGOXIN [Suspect]
     Dosage: 125 MCG, QD, UNK
  6. FUROSEMIDE [Suspect]
     Dosage: 80 MG, QD, UNK

REACTIONS (6)
  - CARDIAC FAILURE [None]
  - CONDITION AGGRAVATED [None]
  - CREPITATIONS [None]
  - DIFFICULTY IN WALKING [None]
  - GENERAL PHYSICAL HEALTH DETERIORATION [None]
  - OEDEMA PERIPHERAL [None]
